FAERS Safety Report 17219759 (Version 4)
Quarter: 2020Q1

REPORT INFORMATION
  Report Type: Report from Study
  Country: US (occurrence: US)
  Receive Date: 20191231
  Receipt Date: 20200303
  Transmission Date: 20200409
  Serious: Yes (Hospitalization)
  Sender: FDA-Public Use
  Company Number: US-OTSUKA-2019_028044

PATIENT
  Age: 62 Year
  Sex: Male

DRUGS (3)
  1. RESTORIL [Suspect]
     Active Substance: TEMAZEPAM
     Dosage: 15 MG, UNK
     Route: 065
  2. ARIPIPRAZOLE (DUAL CHAMBER) [Suspect]
     Active Substance: ARIPIPRAZOLE
     Indication: SCHIZOAFFECTIVE DISORDER BIPOLAR TYPE
     Dosage: 400 MG, QM
     Route: 030
  3. RESTORIL [Suspect]
     Active Substance: TEMAZEPAM
     Indication: INSOMNIA
     Dosage: 30 MG, UNK
     Route: 065
     Dates: end: 20191115

REACTIONS (9)
  - Mental disorder [Unknown]
  - Insomnia [Recovering/Resolving]
  - Paranoia [Unknown]
  - Thinking abnormal [Unknown]
  - Pericardial effusion [Unknown]
  - Drug abuse [Unknown]
  - Walking aid user [Unknown]
  - Road traffic accident [Unknown]
  - Product use in unapproved indication [Unknown]

NARRATIVE: CASE EVENT DATE: 201907
